FAERS Safety Report 9702218 (Version 3)
Quarter: 2014Q1

REPORT INFORMATION
  Report Type: Spontaneous
  Country: IT (occurrence: IT)
  Receive Date: 20131121
  Receipt Date: 20140116
  Transmission Date: 20141002
  Serious: Yes (Hospitalization)
  Sender: FDA-Public Use
  Company Number: IT-ASTRAZENECA-2013SE83920

PATIENT
  Age: 30027 Day
  Sex: Female

DRUGS (1)
  1. ESOMEPRAZOLE [Suspect]
     Indication: ABDOMINAL PAIN UPPER
     Route: 048
     Dates: start: 20130929, end: 20131029

REACTIONS (3)
  - Oropharyngeal swelling [Recovering/Resolving]
  - Obstructive airways disorder [Recovering/Resolving]
  - Tongue oedema [Unknown]
